FAERS Safety Report 10446976 (Version 1)
Quarter: 2014Q3

REPORT INFORMATION
  Report Type: Spontaneous
  Country: US (occurrence: None)
  Receive Date: 20140909
  Receipt Date: 20140909
  Transmission Date: 20150326
  Serious: Yes (Death, Other)
  Sender: FDA-Public Use
  Company Number: 2014AP004496

PATIENT
  Age: 41 Year
  Sex: Female

DRUGS (2)
  1. VERAPAMIL HYDROCHLORIDE. [Suspect]
     Active Substance: VERAPAMIL HYDROCHLORIDE
     Indication: HEADACHE
     Dosage: 30 VERAPAMIL ER
  2. VERAPAMIL HYDROCHLORIDE. [Suspect]
     Active Substance: VERAPAMIL HYDROCHLORIDE
     Indication: ACCIDENTAL OVERDOSE
     Dosage: 30 VERAPAMIL ER

REACTIONS (2)
  - Medication error [None]
  - Accidental overdose [None]
